FAERS Safety Report 8099037-3 (Version None)
Quarter: 2012Q1

REPORT INFORMATION
  Report Type: 
  Country: None (occurrence: None)
  Receive Date: 20120131
  Receipt Date: 20120119
  Transmission Date: 20120608
  Serious: Yes (Hospitalization, Other)
  Sender: FDA-Public Use
  Company Number: US-BAYER-2011-045898

PATIENT
  Age: 34 Year
  Sex: Female

DRUGS (3)
  1. BETASERON [Suspect]
     Dosage: 8 MIU, QOD
     Route: 058
     Dates: end: 20110923
  2. BETASERON [Suspect]
     Indication: RELAPSING-REMITTING MULTIPLE SCLEROSIS
     Dosage: 6 MIU, QOD
     Route: 058
     Dates: start: 20110428, end: 20110923
  3. IBUPROFEN [Concomitant]
     Indication: HEADACHE
     Dosage: UNK UNK, PRN

REACTIONS (9)
  - LOSS OF CONSCIOUSNESS [None]
  - VISION BLURRED [None]
  - TUNNEL VISION [None]
  - VISUAL ACUITY REDUCED [None]
  - FALL [None]
  - NEPHROLITHIASIS [None]
  - DEHYDRATION [None]
  - FRACTURED COCCYX [None]
  - OPTIC NEURITIS [None]
